FAERS Safety Report 7717120-6 (Version None)
Quarter: 2011Q3

REPORT INFORMATION
  Report Type: 
  Country: None (occurrence: None)
  Receive Date: 20110826
  Receipt Date: 20110826
  Transmission Date: 20111222
  Serious: Yes (Hospitalization)
  Sender: FDA-Public Use
  Company Number: None

PATIENT
  Age: 68 Year
  Sex: Male
  Weight: 120.5 kg

DRUGS (4)
  1. DIGOXIN [Suspect]
     Indication: HYPERTENSION
     Dosage: 0.25 MG PO
  2. DIGOXIN [Suspect]
     Indication: CARDIAC FAILURE CONGESTIVE
     Dosage: 0.25 MG PO
  3. VALSARTAN [Suspect]
     Indication: CARDIAC FAILURE CONGESTIVE
     Dosage: 320 MG PO
     Dates: start: 20100714, end: 20100909
  4. VALSARTAN [Suspect]
     Indication: DIABETES MELLITUS
     Dosage: 320 MG PO
     Dates: start: 20100714, end: 20100909

REACTIONS (5)
  - NAUSEA [None]
  - VOMITING [None]
  - BLOOD POTASSIUM INCREASED [None]
  - BLOOD CREATININE INCREASED [None]
  - BRADYCARDIA [None]
